FAERS Safety Report 21293757 (Version 4)
Quarter: 2022Q4

REPORT INFORMATION
  Report Type: Spontaneous
  Country: JP (occurrence: JP)
  Receive Date: 20220905
  Receipt Date: 20221206
  Transmission Date: 20230112
  Serious: Yes (Other)
  Sender: FDA-Public Use
  Company Number: JP-ONO-2022JP024165

PATIENT
  Age: 8 Decade
  Sex: Male

DRUGS (1)
  1. OPDIVO [Suspect]
     Active Substance: NIVOLUMAB
     Indication: Gastric cancer
     Dosage: 240 MG, Q2W
     Route: 041
     Dates: start: 20220824

REACTIONS (3)
  - Disseminated intravascular coagulation [Unknown]
  - COVID-19 [Unknown]
  - Pyrexia [Unknown]

NARRATIVE: CASE EVENT DATE: 20220826
